FAERS Safety Report 10162156 (Version 1)
Quarter: 2014Q2

REPORT INFORMATION
  Report Type: Spontaneous
  Country: US (occurrence: US)
  Receive Date: 20140509
  Receipt Date: 20140509
  Transmission Date: 20141212
  Serious: Yes (Other)
  Sender: FDA-Public Use
  Company Number: US-BEH-2014042362

PATIENT
  Sex: Female
  Weight: 77 kg

DRUGS (50)
  1. PRIVIGEN [Suspect]
     Route: 042
  2. PRIVIGEN [Suspect]
     Indication: IMMUNODEFICIENCY COMMON VARIABLE
     Route: 042
  3. EFFEXOR XR [Concomitant]
  4. RELPAX [Concomitant]
  5. MARINOL [Concomitant]
  6. BUTORPHANOL [Concomitant]
  7. MAALOX MAXIMUM STRENGTH [Concomitant]
  8. NEURONTIN [Concomitant]
  9. TRAMADOL HCL [Concomitant]
  10. CITALOPRAM HBR [Concomitant]
  11. NEXIUM DR [Concomitant]
  12. MORPHINE [Concomitant]
  13. MECLIZINE [Concomitant]
  14. NAMENDA [Concomitant]
  15. NYSTATIN [Concomitant]
  16. CHLORPROMAZINE [Concomitant]
  17. MIRALAX [Concomitant]
  18. ZEGERID OTC [Concomitant]
     Dosage: 20-1,000 MG
  19. NUVIGIL [Concomitant]
  20. SONATA [Concomitant]
  21. RANITIDINE [Concomitant]
  22. DHEA ACETATE [Concomitant]
  23. MELATONIN [Concomitant]
  24. XYLOCAINE [Concomitant]
  25. LYRICA [Concomitant]
  26. ACETAMINOPHEN [Concomitant]
  27. DIPHENHYDRAMINE [Concomitant]
  28. HEPARIN [Concomitant]
     Dosage: 100 U/ML
  29. NORMAL SALINE [Concomitant]
  30. SODIUM CHLORIDE [Concomitant]
  31. EPI-PEN [Concomitant]
  32. EFFEXOR XR [Concomitant]
  33. TEGRETOL [Concomitant]
  34. TOPIRAMATE [Concomitant]
  35. PROCHLORPERAZINE [Concomitant]
  36. AMITRIPTYLINE HCL [Concomitant]
  37. ARICEPT [Concomitant]
  38. NORCO [Concomitant]
     Dosage: 5-325 MG
  39. ATIVAN [Concomitant]
  40. ZITHROMAX [Concomitant]
  41. VALIUM [Concomitant]
  42. DRONABINOL [Concomitant]
  43. SINGULAIR [Concomitant]
  44. PROCHLORPERAZINE [Concomitant]
  45. PROMETHAZINE [Concomitant]
  46. TIZANIDINE HCL [Concomitant]
  47. ONDANSETRON ODT [Concomitant]
  48. FROVA [Concomitant]
  49. CVS IBUPROFEN [Concomitant]
  50. CYANOCOBALAMIN [Concomitant]

REACTIONS (1)
  - Urinary tract infection [Unknown]
